FAERS Safety Report 16567682 (Version 1)
Quarter: 2019Q3

REPORT INFORMATION
  Report Type: Report from Study
  Country: ES (occurrence: ES)
  Receive Date: 20190712
  Receipt Date: 20190712
  Transmission Date: 20191004
  Serious: Yes (Death, Hospitalization)
  Sender: FDA-Public Use
  Company Number: ES-TEVA-2019-ES-1075949

PATIENT
  Age: 78 Year
  Sex: Female

DRUGS (6)
  1. MIRTAZAPINA (2704A) [Concomitant]
     Active Substance: MIRTAZAPINE
     Route: 048
     Dates: start: 20190218, end: 20190307
  2. EUCREAS 50 MG/1000 MG COMPRIMIDOS RECUBIERTOS CON PELICULA, 60 COMPRIM [Interacting]
     Active Substance: METFORMIN HYDROCHLORIDE\VILDAGLIPTIN
     Indication: DIABETES MELLITUS
     Route: 048
     Dates: start: 20130819, end: 20190307
  3. RISPERIDONA (7201A) [Concomitant]
     Active Substance: RISPERIDONE
     Route: 048
     Dates: start: 20190218, end: 20190307
  4. FUROSEMIDA (1615A) [Concomitant]
     Active Substance: FUROSEMIDE
     Indication: CARDIAC FAILURE
     Route: 048
     Dates: start: 20190215, end: 20190308
  5. DIGOXINA (770A) [Concomitant]
     Active Substance: DIGOXIN
     Indication: ATRIAL FIBRILLATION
     Route: 048
     Dates: start: 20190207, end: 20190307
  6. METFORMINA (1359A) [Suspect]
     Active Substance: METFORMIN HYDROCHLORIDE
     Indication: DIABETES MELLITUS
     Route: 048
     Dates: start: 20190219, end: 20190307

REACTIONS (2)
  - Lactic acidosis [Fatal]
  - Drug interaction [Unknown]

NARRATIVE: CASE EVENT DATE: 20190307
